FAERS Safety Report 7219935-X (Version None)
Quarter: 2011Q1

REPORT INFORMATION
  Report Type: 
  Country: None (occurrence: None)
  Receive Date: 20110111
  Receipt Date: 20101230
  Transmission Date: 20110831
  Serious: Yes (Hospitalization)
  Sender: FDA-Public Use
  Company Number: FR-GENENTECH-312006

PATIENT
  Age: 75 Year
  Sex: Female

DRUGS (10)
  1. VINCRISTINE [Suspect]
     Indication: LYMPHOMA
     Dosage: UNK
     Route: 042
     Dates: start: 20100701, end: 20101101
  2. ENDOXAN [Concomitant]
     Indication: PRODUCT USED FOR UNKNOWN INDICATION
     Dosage: UNK
  3. TEMERIT [Concomitant]
     Indication: PRODUCT USED FOR UNKNOWN INDICATION
     Dosage: UNK
  4. SERTRALINE [Concomitant]
     Indication: PRODUCT USED FOR UNKNOWN INDICATION
     Dosage: UNK
  5. MABTHERA [Suspect]
     Indication: LYMPHOMA
     Dosage: UNK
     Route: 042
     Dates: start: 20100701
  6. PREDNISONE [Concomitant]
     Indication: PRODUCT USED FOR UNKNOWN INDICATION
     Dosage: UNK
  7. TAHOR [Concomitant]
     Indication: PRODUCT USED FOR UNKNOWN INDICATION
     Dosage: UNK
  8. DOXORUBICIN [Suspect]
     Indication: LYMPHOMA
     Dosage: UNK
     Route: 042
     Dates: start: 20100701
  9. PRAZEPAM [Concomitant]
     Indication: PRODUCT USED FOR UNKNOWN INDICATION
     Dosage: UNK
  10. NOVONORM [Concomitant]
     Indication: PRODUCT USED FOR UNKNOWN INDICATION
     Dosage: UNK

REACTIONS (3)
  - DYSARTHRIA [None]
  - VIITH NERVE PARALYSIS [None]
  - PARAESTHESIA [None]
